FAERS Safety Report 13278147 (Version 1)
Quarter: 2017Q1

REPORT INFORMATION
  Report Type: Spontaneous
  Country: US (occurrence: US)
  Receive Date: 20170228
  Receipt Date: 20170228
  Transmission Date: 20170428
  Serious: No
  Sender: FDA-Public Use
  Company Number: US-PERRIGO-16US016857

PATIENT
  Age: 47 Year
  Sex: Female
  Weight: 83.9 kg

DRUGS (3)
  1. ERYTHROMYCIN. [Suspect]
     Active Substance: ERYTHROMYCIN
     Indication: SKIN INFECTION
     Dosage: 1 THIN APPLICATION, BID
     Route: 061
     Dates: start: 20160503, end: 20160524
  2. ERYTHROMYCIN. [Suspect]
     Active Substance: ERYTHROMYCIN
     Indication: ACNE
  3. ERYTHROMYCIN. [Suspect]
     Active Substance: ERYTHROMYCIN
     Indication: IMPETIGO
     Dosage: 1 APPLICATION, SINGLE
     Route: 061
     Dates: start: 20160602, end: 20160602

REACTIONS (3)
  - Application site dryness [Not Recovered/Not Resolved]
  - Off label use [Recovered/Resolved]
  - Application site pain [Not Recovered/Not Resolved]

NARRATIVE: CASE EVENT DATE: 20160503
